FAERS Safety Report 4952103-0 (Version None)
Quarter: 2006Q1

REPORT INFORMATION
  Report Type: 
  Country: None (occurrence: None)
  Receive Date: 20060320
  Receipt Date: 20060308
  Transmission Date: 20060701
  Serious: Yes (Other)
  Sender: FDA-Public Use
  Company Number: 2006BH004649

PATIENT

DRUGS (6)
  1. DEXAMETHASONE [Suspect]
     Indication: DIFFUSE LARGE B-CELL LYMPHOMA
     Dosage: 40 MG; UNK; IV
     Route: 042
  2. RITUXIMAB (RITUXIMAB) [Suspect]
     Indication: DIFFUSE LARGE B-CELL LYMPHOMA
     Dosage: 375 MG/M**2; UNK; IV
     Route: 042
  3. CYTARABINE [Suspect]
     Indication: DIFFUSE LARGE B-CELL LYMPHOMA
     Dosage: 1000 MG; UNK; IV
     Route: 042
  4. OXALIPLATIN (OXALIPLATIN) [Suspect]
     Indication: DIFFUSE LARGE B-CELL LYMPHOMA
     Dosage: 130 MG/M**2; UNK; IV
     Route: 042
  5. 5-HT3-RECEPTOR [Concomitant]
  6. ANATAGONIST [Concomitant]

REACTIONS (2)
  - CATHETER RELATED INFECTION [None]
  - LEUKOPENIA [None]
